FAERS Safety Report 9061202 (Version 1)
Quarter: 2013Q1

REPORT INFORMATION
  Report Type: Spontaneous
  Country: DE (occurrence: DE)
  Receive Date: 20130213
  Receipt Date: 20130213
  Transmission Date: 20140127
  Serious: Yes (Hospitalization)
  Sender: FDA-Public Use
  Company Number: DE-AMGEN-DEUSP2013009227

PATIENT
  Age: 58 Year
  Sex: Female

DRUGS (4)
  1. ENBREL [Suspect]
     Indication: PSORIASIS
     Dosage: 50 MG, WEEKLY
     Dates: start: 20100202
  2. DAIVONEX [Concomitant]
     Dosage: UNK
  3. CORTISONE [Concomitant]
     Dosage: UNK
  4. SALICYLIC ACID [Concomitant]
     Dosage: UNK

REACTIONS (3)
  - Accident [Not Recovered/Not Resolved]
  - Upper limb fracture [Not Recovered/Not Resolved]
  - Drug ineffective [Not Recovered/Not Resolved]
